FAERS Safety Report 7708773-7 (Version None)
Quarter: 2011Q3

REPORT INFORMATION
  Report Type: 
  Country: None (occurrence: None)
  Receive Date: 20110819
  Receipt Date: 20110804
  Transmission Date: 20111222
  Serious: Yes (Hospitalization)
  Sender: FDA-Public Use
  Company Number: DSJ-2011-16506

PATIENT
  Age: 79 Year
  Sex: Male

DRUGS (6)
  1. BENICAR [Suspect]
     Indication: HYPERTENSION
     Dosage: 40 MG (40 MG, 1 IN 1 D),PER ORAL, 20 MG (20 MG, 1 IN 1 D),PER ORAL
     Route: 048
     Dates: start: 20110101
  2. BENICAR [Suspect]
     Indication: HYPERTENSION
     Dosage: 40 MG (40 MG, 1 IN 1 D),PER ORAL, 20 MG (20 MG, 1 IN 1 D),PER ORAL
     Route: 048
     Dates: start: 20080101, end: 20110101
  3. ROSUVASTATIN [Concomitant]
  4. METFORMIN HCL [Concomitant]
  5. BISOPROLOL FUMARATE [Concomitant]
  6. PHENYTOIN [Concomitant]

REACTIONS (4)
  - HYPOTENSION [None]
  - HAEMANGIOMA [None]
  - SYNCOPE [None]
  - CEREBRAL THROMBOSIS [None]
